FAERS Safety Report 6568072-6 (Version None)
Quarter: 2010Q1

REPORT INFORMATION
  Report Type: 
  Country: None (occurrence: None)
  Receive Date: 20100203
  Receipt Date: 20100122
  Transmission Date: 20100710
  Serious: Yes (Hospitalization)
  Sender: FDA-Public Use
  Company Number: ES-AMGEN-UK276015

PATIENT
  Sex: Male

DRUGS (4)
  1. PANITUMUMAB [Suspect]
     Indication: COLORECTAL CANCER
     Route: 042
     Dates: start: 20071108
  2. 5-FU [Suspect]
  3. OXALIPLATIN [Suspect]
     Route: 042
  4. FOLINIC ACID [Suspect]

REACTIONS (2)
  - DIARRHOEA [None]
  - GASTROINTESTINAL TOXICITY [None]
